FAERS Safety Report 9405686 (Version 1)
Quarter: 2013Q3

REPORT INFORMATION
  Report Type: Spontaneous
  Country: IL (occurrence: IL)
  Receive Date: 20130717
  Receipt Date: 20130717
  Transmission Date: 20140515
  Serious: Yes (Other)
  Sender: FDA-Public Use
  Company Number: IL-PFIZER INC-2013206830

PATIENT
  Age: 7 Year
  Sex: Male

DRUGS (2)
  1. GENOTROPIN [Suspect]
     Dosage: UNK
  2. DEPALEPT [Concomitant]

REACTIONS (4)
  - Epilepsy [Unknown]
  - Sudden onset of sleep [Unknown]
  - Injection site pain [Unknown]
  - Drug ineffective [Unknown]
